FAERS Safety Report 22608594 (Version 1)
Quarter: 2023Q2

REPORT INFORMATION
  Report Type: Spontaneous
  Country: US (occurrence: US)
  Receive Date: 20230616
  Receipt Date: 20230616
  Transmission Date: 20230721
  Serious: Yes (Hospitalization)
  Sender: FDA-Public Use
  Company Number: US-STRIDES ARCOLAB LIMITED-2023SP009449

PATIENT
  Age: 53 Year
  Sex: Female

DRUGS (6)
  1. OXYCODONE [Suspect]
     Active Substance: OXYCODONE
     Indication: Procedural pain
     Dosage: 4 DOSAGE FORM (TOTAL) (TABLETS), RECEIVED AT ONCE
     Route: 065
  2. OXYCODONE [Suspect]
     Active Substance: OXYCODONE
     Dosage: UNK, OXYCODONE TAPER
     Route: 065
  3. HYDROMORPHONE [Suspect]
     Active Substance: HYDROMORPHONE
     Indication: Mental status changes
     Dosage: 200 MICROGRAM/ML, THROUGH INTRATHECAL PUMP (UNKNOWN INDICATION)
     Route: 037
  4. HYDROMORPHONE [Suspect]
     Active Substance: HYDROMORPHONE
     Dosage: 9.61 MICROGRAM PER DAY, REDUCED DOSE OVER 2 MONTHS BEFORE EXPLANT (UNKNOWN INDICATION)
     Route: 065
  5. HYDROMORPHONE [Suspect]
     Active Substance: HYDROMORPHONE
     Dosage: 2 MILLIGRAM (FOR ALTERED MENTAL CHANGES)
     Route: 065
  6. BUPIVACAINE [Concomitant]
     Active Substance: BUPIVACAINE
     Indication: Product used for unknown indication
     Dosage: 30 MG/ML, THROUGH INTRATHECAL PUMP;
     Route: 037

REACTIONS (8)
  - Mental status changes [Recovered/Resolved]
  - Hyperventilation [Unknown]
  - Alkalosis [Unknown]
  - Chills [Unknown]
  - Intentional product misuse [Unknown]
  - Drug withdrawal syndrome [Unknown]
  - Intentional overdose [Unknown]
  - Nausea [Unknown]
